FAERS Safety Report 21875204 (Version 1)
Quarter: 2023Q1

REPORT INFORMATION
  Report Type: Report from Study
  Country: PT (occurrence: PT)
  Receive Date: 20230117
  Receipt Date: 20230117
  Transmission Date: 20230417
  Serious: Yes (Other)
  Sender: FDA-Public Use
  Company Number: PT-ABBVIE-4272028

PATIENT
  Age: 77 Year
  Sex: Female

DRUGS (12)
  1. CARBIDOPA\LEVODOPA [Suspect]
     Active Substance: CARBIDOPA\LEVODOPA
     Indication: Parkinson^s disease
     Dosage: 20 MG + 5 MG?LAST ADMIN DATE 2022
     Route: 050
     Dates: start: 20220510
  2. CARBIDOPA\LEVODOPA [Suspect]
     Active Substance: CARBIDOPA\LEVODOPA
     Dosage: 20 MG + 5 MG?FIRST ADMIN DATE 2022
     Route: 050
  3. ALPRAZOLAM [Concomitant]
     Active Substance: ALPRAZOLAM
     Indication: Product used for unknown indication
     Dosage: 2 TABLET?FORM STRENGTH: 0.5 MILLIGRAM?FREQUENCY TEXT: AT 11AM AND 4PM ?START DATE TEXT: BEFORE DU...
     Route: 048
  4. LORAZEPAM [Concomitant]
     Active Substance: LORAZEPAM
     Indication: Product used for unknown indication
     Dosage: 1.5 TABLET?FORM STRENGTH: 2.5 MILLIGRAM?FREQUENCY TEXT: AT BEDTIME ?START DATE TEXT: BEFORE DUODOPA
     Route: 048
  5. PANTOPRAZOLE [Concomitant]
     Active Substance: PANTOPRAZOLE
     Indication: Product used for unknown indication
     Dosage: 1 TABLET?FORM STRENGTH: 20 MILLIGRAM?FREQUENCY TEXT: AT FASTING ?START DATE TEXT: BEFORE DUODOPA
     Route: 048
  6. BISOPROLOL [Concomitant]
     Active Substance: BISOPROLOL
     Indication: Product used for unknown indication
     Dosage: 0.5 TABLET?FORM STRENGTH: 5 MILLIGRAM?FREQUENCY TEXT: AT LUNCH?START DATE TEXT: BEFORE DUODOPA
     Route: 048
  7. FUROSEMIDE [Concomitant]
     Active Substance: FUROSEMIDE
     Indication: Product used for unknown indication
     Dosage: 0.5 TABLET?FORM STRENGTH: 40 MILLIGRAM?FREQUENCY TEXT: AT BREAKFAST ?START DATE TEXT: BEFORE DUODOPA
     Route: 048
  8. BENSERAZIDE HYDROCHLORIDE\LEVODOPA [Concomitant]
     Active Substance: BENSERAZIDE HYDROCHLORIDE\LEVODOPA
     Indication: Parkinson^s disease
     Dosage: 1 TABLET?FREQUENCY TEXT: AT BEDTIME
     Route: 048
     Dates: start: 20220617
  9. SEROQUEL [Concomitant]
     Active Substance: QUETIAPINE FUMARATE
     Indication: Product used for unknown indication
     Dosage: 1 TABLET?FREQUENCY TEXT: AT DINNER ?START DATE TEXT: BEFORE DUODOPA
     Route: 048
  10. Vigantol [Concomitant]
     Indication: Product used for unknown indication
     Dosage: 5 DROP?FREQUENCY TEXT: AT BREAKFAST ?START DATE TEXT: BEFORE DUODOPA
     Route: 048
  11. ATROVENT [Concomitant]
     Active Substance: IPRATROPIUM BROMIDE
     Indication: Product used for unknown indication
     Dosage: 6 PUFF?START DATE TEXT: BEFORE DUODOPA
     Route: 048
     Dates: end: 202206
  12. ATORVASTATIN [Concomitant]
     Active Substance: ATORVASTATIN
     Indication: Product used for unknown indication
     Dosage: 1 TABLET?FORM STRENGTH: 20 MILLIGRAM?FREQUENCY TEXT: AT DINNER ?START DATE TEXT: BEFORE DUODOPA
     Route: 048

REACTIONS (1)
  - Respiratory tract infection [Recovered/Resolved]

NARRATIVE: CASE EVENT DATE: 20230101
